FAERS Safety Report 7530503-2 (Version None)
Quarter: 2011Q2

REPORT INFORMATION
  Report Type: 
  Country: None (occurrence: None)
  Receive Date: 20110607
  Receipt Date: 20110527
  Transmission Date: 20111010
  Serious: Yes (Hospitalization)
  Sender: FDA-Public Use
  Company Number: US-BAXTER-2011BH017680

PATIENT
  Age: 64 Year
  Sex: Female

DRUGS (2)
  1. DIANEAL [Suspect]
     Route: 033
     Dates: start: 20091105
  2. DIANEAL [Suspect]
     Indication: PERITONEAL DIALYSIS
     Route: 033
     Dates: start: 20091105

REACTIONS (2)
  - DEHYDRATION [None]
  - VOMITING [None]
